FAERS Safety Report 10784330 (Version 2)
Quarter: 2015Q1

REPORT INFORMATION
  Report Type: Report from Study
  Country: TH (occurrence: TH)
  Receive Date: 20150211
  Receipt Date: 20150312
  Transmission Date: 20150721
  Serious: Yes (Hospitalization)
  Sender: FDA-Public Use
  Company Number: TH-ROCHE-1052871

PATIENT
  Age: 56 Year
  Sex: Female
  Weight: 57 kg

DRUGS (43)
  1. OBINUTUZUMAB [Suspect]
     Active Substance: OBINUTUZUMAB
     Indication: B-CELL LYMPHOMA
     Route: 042
     Dates: start: 20120127
  2. OBINUTUZUMAB [Suspect]
     Active Substance: OBINUTUZUMAB
     Route: 042
  3. ENOXAPARIN [Concomitant]
     Active Substance: ENOXAPARIN
     Indication: DEEP VEIN THROMBOSIS
     Route: 065
     Dates: start: 20120601, end: 20120607
  4. CEFTAZIDIME. [Concomitant]
     Active Substance: CEFTAZIDIME
     Indication: PANCYTOPENIA
     Route: 065
     Dates: start: 20120617, end: 20120618
  5. ORFARIN [Concomitant]
     Active Substance: WARFARIN SODIUM
     Indication: DEEP VEIN THROMBOSIS
     Route: 065
     Dates: start: 20120617, end: 20120625
  6. ONDANSETRON [Concomitant]
     Active Substance: ONDANSETRON
     Indication: NAUSEA
  7. FOLIC ACID. [Concomitant]
     Active Substance: FOLIC ACID
     Route: 065
     Dates: start: 20120617, end: 20120626
  8. WARFARIN [Concomitant]
     Active Substance: WARFARIN
     Indication: DEEP VEIN THROMBOSIS
     Route: 065
     Dates: start: 20120217, end: 20120823
  9. AMIKIN [Concomitant]
     Active Substance: AMIKACIN SULFATE
     Indication: PANCYTOPENIA
     Route: 065
     Dates: start: 20120617, end: 20120618
  10. MAGNESIUM CHLORIDE. [Concomitant]
     Active Substance: MAGNESIUM CHLORIDE
     Indication: PANCYTOPENIA
     Dosage: 10 % MAGNESIUM CHLORIDE
     Route: 065
     Dates: start: 20120618, end: 20120620
  11. CETIRIZINE [Concomitant]
     Active Substance: CETIRIZINE HYDROCHLORIDE
     Indication: PANCYTOPENIA
     Route: 065
     Dates: start: 20120617, end: 20120620
  12. AUGMENTIN [Concomitant]
     Active Substance: AMOXICILLIN\CLAVULANATE POTASSIUM
     Indication: PANCYTOPENIA
     Route: 065
     Dates: start: 20120620, end: 20120624
  13. CLOTRIMAZOLE. [Concomitant]
     Active Substance: CLOTRIMAZOLE
     Indication: PANCYTOPENIA
     Route: 065
     Dates: start: 20120617, end: 20120622
  14. DEXAMETHASONE. [Concomitant]
     Active Substance: DEXAMETHASONE
     Indication: PREMEDICATION
     Route: 065
     Dates: start: 20120127, end: 20120629
  15. BACTRIM [Concomitant]
     Active Substance: SULFAMETHOXAZOLE\TRIMETHOPRIM
     Indication: FEBRILE NEUTROPENIA
     Route: 065
     Dates: start: 20120528
  16. VINCRISTINE [Suspect]
     Active Substance: VINCRISTINE
     Route: 042
  17. BROMHEXINE [Concomitant]
     Active Substance: BROMHEXINE
     Indication: PANCYTOPENIA
     Route: 065
     Dates: start: 20120619, end: 20120626
  18. ONDANSETRON [Concomitant]
     Active Substance: ONDANSETRON
     Indication: PREMEDICATION
     Route: 065
     Dates: start: 20120127, end: 20120629
  19. CIPROFLOXACIN. [Concomitant]
     Active Substance: CIPROFLOXACIN
     Indication: FEBRILE NEUTROPENIA
     Route: 065
     Dates: start: 20120709, end: 20120716
  20. CYCLOPHOSPHAMIDE. [Suspect]
     Active Substance: CYCLOPHOSPHAMIDE
     Indication: B-CELL LYMPHOMA
     Route: 042
     Dates: start: 20120127
  21. DOXORUBICIN [Suspect]
     Active Substance: DOXORUBICIN
     Route: 042
  22. PREDNISONE. [Suspect]
     Active Substance: PREDNISONE
     Indication: B-CELL LYMPHOMA
     Route: 048
     Dates: start: 20120127
  23. ONDANSETRON [Concomitant]
     Active Substance: ONDANSETRON
     Indication: VOMITING
  24. FOLIC ACID. [Concomitant]
     Active Substance: FOLIC ACID
     Indication: FEBRILE NEUTROPENIA
     Route: 065
     Dates: start: 20120527
  25. CYCLOPHOSPHAMIDE. [Suspect]
     Active Substance: CYCLOPHOSPHAMIDE
     Route: 042
  26. TAZOCIN [Concomitant]
     Active Substance: PIPERACILLIN SODIUM\TAZOBACTAM SODIUM
     Indication: PANCYTOPENIA
     Route: 065
     Dates: start: 20120617, end: 20120617
  27. FOLIC ACID. [Concomitant]
     Active Substance: FOLIC ACID
     Route: 065
     Dates: start: 20120707, end: 20120713
  28. CEFEPIME [Concomitant]
     Active Substance: CEFEPIME\CEFEPIME HYDROCHLORIDE
     Indication: FEBRILE NEUTROPENIA
     Route: 065
     Dates: start: 20120705, end: 20120709
  29. DOXORUBICIN [Suspect]
     Active Substance: DOXORUBICIN
     Indication: B-CELL LYMPHOMA
     Route: 042
     Dates: start: 20120127
  30. VINCRISTINE [Suspect]
     Active Substance: VINCRISTINE
     Indication: B-CELL LYMPHOMA
     Route: 042
     Dates: start: 20120127
  31. TAMIFLU [Concomitant]
     Active Substance: OSELTAMIVIR PHOSPHATE
     Indication: PANCYTOPENIA
     Route: 065
     Dates: start: 20120618, end: 20120620
  32. ACYCLOVIR. [Concomitant]
     Active Substance: ACYCLOVIR
     Indication: FEBRILE NEUTROPENIA
     Route: 065
     Dates: start: 20120527
  33. POTASSIUM CHLORIDE. [Concomitant]
     Active Substance: POTASSIUM CHLORIDE
     Route: 065
     Dates: start: 20120618, end: 20120626
  34. CETIRIZINE [Concomitant]
     Active Substance: CETIRIZINE HYDROCHLORIDE
     Indication: FEBRILE NEUTROPENIA
     Route: 065
     Dates: start: 20120603
  35. PREDNISONE. [Suspect]
     Active Substance: PREDNISONE
     Route: 042
  36. CLEXANE [Concomitant]
     Active Substance: ENOXAPARIN SODIUM
     Indication: DEEP VEIN THROMBOSIS
     Route: 065
     Dates: start: 20111126, end: 20120216
  37. GLIPIZIDE. [Concomitant]
     Active Substance: GLIPIZIDE
     Indication: DIABETES MELLITUS
     Route: 065
     Dates: start: 20120427
  38. METFORMIN [Concomitant]
     Active Substance: METFORMIN HYDROCHLORIDE
     Indication: DIABETES MELLITUS
     Route: 065
     Dates: start: 20120709
  39. MAXIPIME [Concomitant]
     Active Substance: CEFEPIME HYDROCHLORIDE
     Indication: PANCYTOPENIA
     Route: 065
     Dates: start: 20120618, end: 20120620
  40. BENADRYL (THAILAND) [Concomitant]
     Indication: PREMEDICATION
     Route: 065
     Dates: start: 20120127, end: 20120629
  41. PARACETAMOL [Concomitant]
     Active Substance: ACETAMINOPHEN
     Indication: PREMEDICATION
     Route: 065
     Dates: start: 20120127, end: 20120629
  42. POTASSIUM CHLORIDE. [Concomitant]
     Active Substance: POTASSIUM CHLORIDE
     Indication: FEBRILE NEUTROPENIA
     Route: 065
     Dates: start: 20120602, end: 20120608
  43. POTASSIUM CHLORIDE. [Concomitant]
     Active Substance: POTASSIUM CHLORIDE
     Indication: PANCYTOPENIA
     Route: 065
     Dates: start: 20120705, end: 20120706

REACTIONS (1)
  - Sepsis [Recovered/Resolved]

NARRATIVE: CASE EVENT DATE: 20120316
